FAERS Safety Report 6888434-7 (Version None)
Quarter: 2010Q3

REPORT INFORMATION
  Report Type: 
  Country: None (occurrence: None)
  Receive Date: 20100730
  Receipt Date: 20100719
  Transmission Date: 20110219
  Serious: Yes (Other)
  Sender: FDA-Public Use
  Company Number: US-ELI_LILLY_AND_COMPANY-US201007006165

PATIENT
  Sex: Female

DRUGS (4)
  1. BYETTA [Suspect]
  2. METFORMIN HCL [Concomitant]
  3. PRANDIN [Concomitant]
  4. FISH OIL [Concomitant]

REACTIONS (3)
  - BLOOD GLUCOSE DECREASED [None]
  - DYSPNOEA [None]
  - SWOLLEN TONGUE [None]
